FAERS Safety Report 23549674 (Version 1)
Quarter: 2024Q1

REPORT INFORMATION
  Report Type: Other
  Country: AU (occurrence: AU)
  Receive Date: 20240221
  Receipt Date: 20240221
  Transmission Date: 20240410
  Serious: Yes (Other)
  Sender: FDA-Public Use
  Company Number: AU-ANTENGENE-20240202353

PATIENT

DRUGS (10)
  1. XPOVIO [Suspect]
     Active Substance: SELINEXOR
     Indication: Plasma cell myeloma
     Dosage: UNK
  2. CYCLOPHOSPHAMIDE [Concomitant]
     Active Substance: CYCLOPHOSPHAMIDE
  3. KYPROLIS [Concomitant]
     Active Substance: CARFILZOMIB
  4. POMALYST [Concomitant]
     Active Substance: POMALIDOMIDE
  5. REVLIMID [Concomitant]
     Active Substance: LENALIDOMIDE
  6. CISPLATIN [Concomitant]
     Active Substance: CISPLATIN
  7. DEXAMETHASONE [Concomitant]
     Active Substance: DEXAMETHASONE
  8. DOXORUBICIN HYDROCHLORIDE [Concomitant]
     Active Substance: DOXORUBICIN HYDROCHLORIDE
  9. ETOPOSIDE [Concomitant]
     Active Substance: ETOPOSIDE
  10. VELCADE [Concomitant]
     Active Substance: BORTEZOMIB

REACTIONS (1)
  - Plasma cell myeloma [Unknown]
